FAERS Safety Report 6874794-X (Version None)
Quarter: 2010Q3

REPORT INFORMATION
  Report Type: 
  Country: None (occurrence: None)
  Receive Date: 20100712
  Receipt Date: 20100701
  Transmission Date: 20110219
  Serious: Yes (Other)
  Sender: FDA-Public Use
  Company Number: 2010SP037107

PATIENT
  Age: 16 Year
  Sex: Female

DRUGS (2)
  1. IMPLANON [Suspect]
     Indication: PRODUCT USED FOR UNKNOWN INDICATION
     Dates: start: 20091012
  2. PROZAC [Concomitant]

REACTIONS (8)
  - ANXIETY [None]
  - DEPRESSED MOOD [None]
  - DEPRESSION [None]
  - HAEMORRHAGE [None]
  - METRORRHAGIA [None]
  - SELF-INJURIOUS IDEATION [None]
  - SLEEP DISORDER [None]
  - SUICIDAL IDEATION [None]
